FAERS Safety Report 4999176-7 (Version None)
Quarter: 2006Q2

REPORT INFORMATION
  Report Type: 
  Country: None (occurrence: None)
  Receive Date: 20060511
  Receipt Date: 20050509
  Transmission Date: 20061013
  Serious: Yes (Other)
  Sender: FDA-Public Use
  Company Number: PHFR2005GB01750

PATIENT
  Age: 36 Year
  Sex: Male

DRUGS (4)
  1. TEGRETOL [Suspect]
     Indication: EPILEPSY
     Dosage: 400 MG, TID
     Route: 048
     Dates: start: 20010101
  2. TEMOZOLOMIDE [Suspect]
     Indication: GLIOMA
     Route: 048
     Dates: start: 20050101
  3. LYRICA [Suspect]
     Indication: EPILEPSY
     Dosage: 225MG MANE/300MG NOCTE
     Route: 048
     Dates: start: 20050207
  4. PHENYTOIN [Suspect]
     Indication: EPILEPSY
     Dosage: 50MG NOCTE
     Route: 065
     Dates: start: 20040401

REACTIONS (3)
  - DIZZINESS [None]
  - DRUG INTERACTION [None]
  - SIMPLE PARTIAL SEIZURES [None]
